FAERS Safety Report 7182665-7 (Version None)
Quarter: 2010Q4

REPORT INFORMATION
  Report Type: 
  Country: None (occurrence: None)
  Receive Date: 20101221
  Receipt Date: 20100518
  Transmission Date: 20110411
  Serious: No
  Sender: FDA-Public Use
  Company Number: US-AMGEN-KDL412924

PATIENT

DRUGS (15)
  1. ENBREL [Suspect]
     Indication: PRODUCT USED FOR UNKNOWN INDICATION
     Dosage: 50 MG, QWK
     Route: 058
  2. FUROSEMIDE [Concomitant]
     Dosage: 20 MG, UNK
  3. PREDNISONE [Concomitant]
     Dosage: 10 MG, UNK
  4. LEVOTHYROXINE SODIUM [Concomitant]
     Dosage: 25 MG, UNK
  5. TRAMADOL HYDROCHLORIDE [Concomitant]
     Dosage: 50 MG, UNK
  6. PRAVASTATIN [Concomitant]
     Dosage: 10 MG, UNK
  7. IPRATROPIUM BROMIDE [Concomitant]
  8. FOLIC ACID [Concomitant]
     Dosage: 1 MG, UNK
  9. ALBUTEROL INHALER [Concomitant]
     Dosage: 90 MG, UNK
  10. FLUTICASONE/SALMETEROL [Concomitant]
  11. MULTI-VITAMINS [Concomitant]
     Dosage: UNK UNK, UNK
  12. TIOTROPIUM BROMIDE [Concomitant]
  13. TIZANIDINE HYDROCHLORIDE [Concomitant]
     Dosage: 2 MG, UNK
  14. ACETYLSALICYLIC ACID [Concomitant]
     Dosage: 81 MG, UNK
  15. METHOTREXATE [Concomitant]
     Dosage: 20 MG, UNK

REACTIONS (2)
  - CHEST PAIN [None]
  - FATIGUE [None]
